FAERS Safety Report 21629427 (Version 1)
Quarter: 2022Q4

REPORT INFORMATION
  Report Type: Spontaneous
  Country: US (occurrence: None)
  Receive Date: 20221122
  Receipt Date: 20221122
  Transmission Date: 20230113
  Serious: Yes (Death, Life-Threatening, Hospitalization)
  Sender: FDA-Public Use
  Company Number: None

PATIENT
  Sex: Female
  Weight: 70.2 kg

DRUGS (5)
  1. KADCYLA [Suspect]
     Active Substance: ADO-TRASTUZUMAB EMTANSINE
     Indication: Breast cancer
     Dates: start: 20220913, end: 20221028
  2. LISINOPRIL [Concomitant]
     Active Substance: LISINOPRIL
  3. RADIATION THERAPY [Concomitant]
     Active Substance: RADIATION THERAPY
  4. lidocaine-prilocaine cream [Concomitant]
  5. MOMETASONE [Concomitant]
     Active Substance: MOMETASONE

REACTIONS (3)
  - Respiratory distress [None]
  - Pneumonitis [None]
  - Loss of personal independence in daily activities [None]
